FAERS Safety Report 19570049 (Version 1)
Quarter: 2021Q3

REPORT INFORMATION
  Report Type: Spontaneous
  Country: US (occurrence: US)
  Receive Date: 20210715
  Receipt Date: 20210715
  Transmission Date: 20211014
  Serious: Yes (Hospitalization)
  Sender: FDA-Public Use
  Company Number: US-PARI RESPIRATORY EQUIPMENT, INC.-2021PAR00039

PATIENT
  Age: 12 Year
  Sex: Male

DRUGS (13)
  1. IBUPROFEN. [Concomitant]
     Active Substance: IBUPROFEN
  2. ZOFRAN [Concomitant]
     Active Substance: ONDANSETRON HYDROCHLORIDE
  3. BACLOFEN. [Concomitant]
     Active Substance: BACLOFEN
  4. MULTIVITAMIN [Concomitant]
     Active Substance: VITAMINS
  5. CLONAZEPAM RAPDIS [Concomitant]
  6. PREDNISONE DS PK [Concomitant]
  7. LEVOFLOXACIN. [Concomitant]
     Active Substance: LEVOFLOXACIN
  8. ZYRTEC [Concomitant]
     Active Substance: CETIRIZINE HYDROCHLORIDE
  9. CLOBAZAM. [Concomitant]
     Active Substance: CLOBAZAM
  10. KEPPRA [Concomitant]
     Active Substance: LEVETIRACETAM
  11. PEPCID [Concomitant]
     Active Substance: FAMOTIDINE
  12. ZENPEP [Concomitant]
     Active Substance: PANCRELIPASE AMYLASE\PANCRELIPASE LIPASE\PANCRELIPASE PROTEASE
  13. KITABIS PAK [Suspect]
     Active Substance: TOBRAMYCIN
     Indication: LUNG DISORDER
     Dosage: 300/5 MG/ML VIA NEBULIZER, 2X/DAY FOR 28 DAYS ON THEN 28 DAYS OFF
     Dates: start: 20200917

REACTIONS (3)
  - Pneumonia [Unknown]
  - Respiratory distress [Unknown]
  - Off label use [Unknown]

NARRATIVE: CASE EVENT DATE: 20200917
